FAERS Safety Report 9553225 (Version 1)
Quarter: 2013Q3

REPORT INFORMATION
  Report Type: Spontaneous
  Country: GB (occurrence: GB)
  Receive Date: 20130925
  Receipt Date: 20130925
  Transmission Date: 20140515
  Serious: Yes (Other)
  Sender: FDA-Public Use
  Company Number: GB-009507513-1309GBR009329

PATIENT
  Age: 19 Year
  Sex: Female

DRUGS (4)
  1. NEXPLANON [Suspect]
     Dosage: 68 MG, UNK
     Route: 023
     Dates: start: 20130719, end: 20130906
  2. ACETAMINOPHEN (+) CODEINE PHOSPHATE [Concomitant]
  3. MERCILON [Concomitant]
  4. NORETHINDRONE [Concomitant]

REACTIONS (1)
  - Convulsion [Not Recovered/Not Resolved]
